FAERS Safety Report 15657878 (Version 1)
Quarter: 2018Q4

REPORT INFORMATION
  Report Type: Spontaneous
  Country: US (occurrence: US)
  Receive Date: 20181126
  Receipt Date: 20181126
  Transmission Date: 20190205
  Serious: No
  Sender: FDA-Public Use
  Company Number: US-THE RITEDOSE CORPORATION-2017RIT000274

PATIENT

DRUGS (3)
  1. IPRATROPIUM BROMIDE AND ALBUTEROL SULFATE [Suspect]
     Active Substance: ALBUTEROL SULFATE\IPRATROPIUM BROMIDE
     Dosage: 1 DF, ONCE
     Route: 055
     Dates: start: 2017, end: 2017
  2. IPRATROPIUM BROMIDE AND ALBUTEROL SULFATE [Suspect]
     Active Substance: ALBUTEROL SULFATE\IPRATROPIUM BROMIDE
     Indication: CHRONIC OBSTRUCTIVE PULMONARY DISEASE
     Dosage: 1 DF, QID AS NEEDED
     Route: 055
     Dates: end: 2017
  3. IPRATROPIUM BROMIDE AND ALBUTEROL SULFATE [Suspect]
     Active Substance: ALBUTEROL SULFATE\IPRATROPIUM BROMIDE
     Dosage: UNK
     Route: 055
     Dates: start: 2017

REACTIONS (8)
  - Oral mucosal erythema [Recovered/Resolved]
  - Product formulation issue [Unknown]
  - Oral discomfort [Recovered/Resolved]
  - Lip exfoliation [Recovered/Resolved]
  - Pharyngeal erythema [Recovered/Resolved]
  - Lip erythema [Recovered/Resolved]
  - Oral mucosal exfoliation [Recovered/Resolved]
  - Throat irritation [Recovered/Resolved]

NARRATIVE: CASE EVENT DATE: 2017
